FAERS Safety Report 17143816 (Version 15)
Quarter: 2020Q3

REPORT INFORMATION
  Report Type: Report from Study
  Country: SE (occurrence: SE)
  Receive Date: 20191211
  Receipt Date: 20200805
  Transmission Date: 20201102
  Serious: Yes (Other)
  Sender: FDA-Public Use
  Company Number: SE-BRISTOL-MYERS SQUIBB COMPANY-BMS-2019-116019

PATIENT
  Age: 73 Year
  Sex: Male

DRUGS (1)
  1. NIVOLUMAB [Suspect]
     Active Substance: NIVOLUMAB
     Indication: MALIGNANT MELANOMA
     Dosage: UNK
     Route: 065

REACTIONS (19)
  - Fatigue [Unknown]
  - Nausea [Unknown]
  - Swelling [Unknown]
  - Pruritus [Unknown]
  - Vision blurred [Unknown]
  - Decreased appetite [Unknown]
  - Gait disturbance [Unknown]
  - Myalgia [Unknown]
  - Chest pain [Unknown]
  - Eye pain [Unknown]
  - Ocular hyperaemia [Unknown]
  - Balance disorder [Unknown]
  - Vomiting [Unknown]
  - Rash [Unknown]
  - Ligament pain [Unknown]
  - Cough [Unknown]
  - Abdominal pain [Unknown]
  - Blister [Unknown]
  - Ligament disorder [Unknown]

NARRATIVE: CASE EVENT DATE: 20191105
